FAERS Safety Report 11315708 (Version 3)
Quarter: 2015Q3

REPORT INFORMATION
  Report Type: Spontaneous
  Country: BR (occurrence: BR)
  Receive Date: 20150728
  Receipt Date: 20150907
  Transmission Date: 20151125
  Serious: Yes (Hospitalization, Other)
  Sender: FDA-Public Use
  Company Number: BR-PFIZER INC-2015242616

PATIENT
  Age: 63 Year
  Sex: Male
  Weight: 78 kg

DRUGS (3)
  1. SUTENT [Suspect]
     Active Substance: SUNITINIB MALATE
     Indication: METASTATIC RENAL CELL CARCINOMA
     Dosage: 50 MG, WITH NO 2-WEEK PAUSES
  2. SUTENT [Suspect]
     Active Substance: SUNITINIB MALATE
     Dosage: 50 MG, CYCLE 4X2
     Route: 048
     Dates: start: 20150517, end: 20150807
  3. CO-PRESSOTEC [Concomitant]
     Dosage: UNK

REACTIONS (6)
  - Eye haemorrhage [Unknown]
  - Pyrexia [Recovered/Resolved]
  - Haemorrhagic stroke [Unknown]
  - Ocular vascular disorder [Unknown]
  - Haematoma [Unknown]
  - Nausea [Unknown]

NARRATIVE: CASE EVENT DATE: 2015
